FAERS Safety Report 25878965 (Version 1)
Quarter: 2025Q4

REPORT INFORMATION
  Report Type: Spontaneous
  Country: CN (occurrence: CN)
  Receive Date: 20251003
  Receipt Date: 20251003
  Transmission Date: 20260118
  Serious: Yes (Death, Other)
  Sender: AMGEN
  Company Number: CN-AMGEN-CHNSP2025194715

PATIENT

DRUGS (1)
  1. XGEVA [Suspect]
     Active Substance: DENOSUMAB
     Indication: Bone giant cell tumour malignant
     Dosage: UNK
     Route: 065

REACTIONS (3)
  - Death [Fatal]
  - Bone giant cell tumour malignant [Unknown]
  - Metastases to lung [Unknown]
